FAERS Safety Report 9197426 (Version 1)
Quarter: 2013Q1

REPORT INFORMATION
  Report Type: Spontaneous
  Country: US (occurrence: None)
  Receive Date: 20120709
  Receipt Date: 20120709
  Transmission Date: 20140127
  Serious: Yes (Other)
  Sender: FDA-Public Use
  Company Number: PHHY2011US39937

PATIENT
  Age: 57 Year
  Sex: Male
  Weight: 82.5 kg

DRUGS (6)
  1. GLEEVEC (IMATINIB) [Suspect]
     Route: 048
     Dates: start: 2002
  2. CYMBALTA (DULOXETINE HYDROCHLORIDE) CAPSULE [Concomitant]
  3. MAXALT (RIZATRIPTAN) TABLET [Concomitant]
  4. IRON (IRON) TABLET [Concomitant]
  5. MULTIVITAMINS (ASCORBIC ACID, ERGOCALCIFEROL, FOLIC ACID, NICOTINAMIDE, PANTHENOL, RETINOL, RIBOFLAVIN, THIAMINE HYDROCHLORIDE) TABLET [Concomitant]
  6. CALCIUM W/ MAGNESIUM (CALCIUM, MAGNESIUM) TABLET [Concomitant]

REACTIONS (3)
  - Anaemia [None]
  - Diarrhoea [None]
  - Muscle spasms [None]
